FAERS Safety Report 22786833 (Version 2)
Quarter: 2023Q4

REPORT INFORMATION
  Report Type: Report from Study
  Country: TR (occurrence: TR)
  Receive Date: 20230804
  Receipt Date: 20231128
  Transmission Date: 20240109
  Serious: Yes (Hospitalization)
  Sender: FDA-Public Use
  Company Number: TR-ABBVIE-5353885

PATIENT
  Sex: Female
  Weight: 60 kg

DRUGS (2)
  1. CARBIDOPA\LEVODOPA [Suspect]
     Active Substance: CARBIDOPA\LEVODOPA
     Indication: Parkinson^s disease
     Dosage: MORNING DOSE (ML): 5.00 CONTINUOUS DOSE (ML): 1.80 EXTRA DOSE (ML): 0.50
     Route: 050
     Dates: start: 20190424, end: 20230802
  2. CARBIDOPA\LEVODOPA [Suspect]
     Active Substance: CARBIDOPA\LEVODOPA

REACTIONS (4)
  - Infection [Not Recovered/Not Resolved]
  - Stoma site erythema [Recovered/Resolved]
  - Pyrexia [Recovered/Resolved]
  - Stoma site discharge [Recovered/Resolved]
